FAERS Safety Report 9360707 (Version 2)
Quarter: 2013Q2

REPORT INFORMATION
  Report Type: Report from Study
  Country: GB (occurrence: GB)
  Receive Date: 20130621
  Receipt Date: 20130627
  Transmission Date: 20140414
  Serious: Yes (Hospitalization)
  Sender: FDA-Public Use
  Company Number: GB-MPIJNJ-2013-04646

PATIENT
  Sex: 0

DRUGS (11)
  1. VELCADE [Suspect]
     Indication: DIFFUSE LARGE B-CELL LYMPHOMA
     Dosage: 1.96 MG, UNK
     Route: 065
     Dates: start: 20130508, end: 20130605
  2. RITUXIMAB [Suspect]
     Indication: DIFFUSE LARGE B-CELL LYMPHOMA
     Dosage: 550 MG, UNK
     Route: 065
     Dates: start: 20130417, end: 20130529
  3. CYCLOPHOSPHAMIDE [Suspect]
     Indication: DIFFUSE LARGE B-CELL LYMPHOMA
     Dosage: 1150 MG, UNK
     Route: 065
     Dates: start: 20130417, end: 20130529
  4. VINCRISTINE [Suspect]
     Indication: DIFFUSE LARGE B-CELL LYMPHOMA
     Dosage: 2 MG, UNK
     Route: 065
     Dates: start: 20130417, end: 20130529
  5. DOXORUBICIN [Suspect]
     Indication: DIFFUSE LARGE B-CELL LYMPHOMA
     Dosage: 76 MG, UNK
     Route: 065
     Dates: start: 20130417, end: 20130529
  6. PREDNISOLONE [Suspect]
     Indication: DIFFUSE LARGE B-CELL LYMPHOMA
     Dosage: 100 MG, UNK
     Route: 065
     Dates: start: 20130417, end: 20130602
  7. CITALOPRAM [Concomitant]
     Dosage: 20 MG, UNK
     Route: 048
  8. PERINDOPRIL [Concomitant]
     Dosage: 8 MG, UNK
     Route: 048
  9. HYDROXYZINE [Concomitant]
     Dosage: 25 MG, UNK
     Route: 048
  10. ASPIRIN [Concomitant]
     Dosage: 75 MG, UNK
     Route: 048
  11. LERCANIDIPINE [Concomitant]
     Dosage: 20 MG, UNK
     Route: 048

REACTIONS (1)
  - Peripheral nerve infection [Not Recovered/Not Resolved]
